FAERS Safety Report 5197346-9 (Version None)
Quarter: 2006Q4

REPORT INFORMATION
  Report Type: 
  Country: None (occurrence: None)
  Receive Date: 20060929
  Receipt Date: 20060814
  Transmission Date: 20070319
  Serious: Yes (Hospitalization, Other)
  Sender: FDA-Public Use
  Company Number: 13474572

PATIENT
  Sex: Female

DRUGS (3)
  1. EMSAM [Suspect]
     Indication: DEPRESSION
     Dosage: TD
     Route: 062
  2. COUMADIN [Concomitant]
  3. ASPIRIN [Concomitant]

REACTIONS (1)
  - SUICIDE ATTEMPT [None]
